FAERS Safety Report 7137843 (Version 3)
Quarter: 2012Q4

REPORT INFORMATION
  Report Type: 
  Country: US (occurrence: US)
  Receive Date: 20091002
  Receipt Date: 20121015
  Transmission Date: 20130627
  Serious: Yes (Other)
  Sender: FDA-Public Use
  Company Number: US-ASTRAZENECA-2008UW24919

PATIENT
  Age: 79 Year
  Sex: Female
  Weight: 59 kg

DRUGS (9)
  1. ARIMIDEX [Suspect]
     Indication: BREAST CANCER FEMALE
     Route: 048
     Dates: start: 200712
  2. ARIMIDEX [Suspect]
     Indication: BREAST CANCER FEMALE
     Dosage: GENERIC
     Route: 048
  3. RHINOCORT AQ [Concomitant]
     Route: 045
  4. ASTELIN [Concomitant]
  5. VITAMINS [Concomitant]
  6. FOLIC ACID [Concomitant]
  7. CALCIUM [Concomitant]
  8. OMEGA-3 ACID [Concomitant]
  9. SYNTHROID [Concomitant]

REACTIONS (6)
  - Pharyngeal neoplasm [Unknown]
  - Neoplasm malignant [Unknown]
  - Back pain [Recovered/Resolved]
  - Renal impairment [Unknown]
  - Back pain [Unknown]
  - Musculoskeletal pain [Recovered/Resolved]
